FAERS Safety Report 5021059-7 (Version None)
Quarter: 2006Q2

REPORT INFORMATION
  Report Type: 
  Country: None (occurrence: None)
  Receive Date: 20060608
  Receipt Date: 20060601
  Transmission Date: 20061013
  Serious: Yes (Hospitalization)
  Sender: FDA-Public Use
  Company Number: FR-JNJFOC-20060600365

PATIENT
  Age: 86 Year
  Sex: Male

DRUGS (5)
  1. HALDOL [Suspect]
     Indication: DRUG USE FOR UNKNOWN INDICATION
     Route: 048
  2. EQUANIL [Suspect]
     Indication: DRUG USE FOR UNKNOWN INDICATION
     Route: 048
  3. LEPTICUR [Concomitant]
  4. HEPTAMYL [Concomitant]
  5. MOPRAL [Concomitant]

REACTIONS (2)
  - BRADYCARDIA [None]
  - ORTHOSTATIC HYPOTENSION [None]
